FAERS Safety Report 14657981 (Version 1)
Quarter: 2018Q1

REPORT INFORMATION
  Report Type: Spontaneous
  Country: US (occurrence: US)
  Receive Date: 20180320
  Receipt Date: 20180320
  Transmission Date: 20180509
  Serious: No
  Sender: FDA-Public Use
  Company Number: US-TEVA-770146ACC

PATIENT
  Sex: Male

DRUGS (2)
  1. CICLOSPORIN [Suspect]
     Active Substance: CYCLOSPORINE
     Dosage: 100 MILLIGRAM DAILY;
  2. CICLOSPORIN [Suspect]
     Active Substance: CYCLOSPORINE
     Indication: AUTOIMMUNE RETINOPATHY
     Dosage: DOSE DECREASED

REACTIONS (4)
  - Liver function test abnormal [Unknown]
  - Renal function test abnormal [Unknown]
  - Drug ineffective [Unknown]
  - Product use in unapproved indication [Unknown]
